FAERS Safety Report 9289488 (Version 2)
Quarter: 2013Q2

REPORT INFORMATION
  Report Type: Spontaneous
  Country: US (occurrence: US)
  Receive Date: 20130514
  Receipt Date: 20130516
  Transmission Date: 20140414
  Serious: No
  Sender: FDA-Public Use
  Company Number: US-009507513-1305USA008198

PATIENT
  Sex: Female

DRUGS (4)
  1. PEGINTRON [Suspect]
     Indication: HEPATITIS C
     Dosage: REDIPEN PEGINTRON 80 MCG/0.5 CC
     Route: 058
  2. PEGINTRON [Suspect]
     Dosage: REDIPEN PEGINTRON 80MCG/0.4 CC
  3. PEGINTRON [Suspect]
     Dosage: UNK
     Route: 058
     Dates: start: 20130426
  4. REBETOL [Suspect]
     Indication: HEPATITIS C
     Dosage: UNK
     Route: 048
     Dates: start: 20130426

REACTIONS (4)
  - Leukopenia [Unknown]
  - White blood cell count decreased [Unknown]
  - Leukopenia [Unknown]
  - White blood cell count decreased [Unknown]
